FAERS Safety Report 16493537 (Version 1)
Quarter: 2019Q2

REPORT INFORMATION
  Report Type: Spontaneous
  Country: GB (occurrence: GB)
  Receive Date: 20190628
  Receipt Date: 20190628
  Transmission Date: 20190711
  Serious: Yes (Other)
  Sender: FDA-Public Use
  Company Number: GB-ACCORD-135349

PATIENT
  Age: 69 Year
  Sex: Female
  Weight: 76 kg

DRUGS (6)
  1. CLINITAS [Concomitant]
     Dosage: 3-4 TIMES/DAY
     Dates: start: 20181023
  2. AMLODIPINE [Concomitant]
     Active Substance: AMLODIPINE BESYLATE
     Dates: start: 20180910
  3. EZETIMIBE. [Concomitant]
     Active Substance: EZETIMIBE
     Dates: start: 20190524
  4. ATORVASTATIN/ATORVASTATIN CALCIUM [Suspect]
     Active Substance: ATORVASTATIN CALCIUM
     Indication: BLOOD CHOLESTEROL INCREASED
     Dosage: EVENING
     Dates: start: 20190304
  5. NITROFURANTOIN/NITROFURANTOIN SODIUM [Concomitant]
     Dates: start: 20190325, end: 20190401
  6. QUINIDINE [Concomitant]
     Active Substance: QUINIDINE
     Dates: start: 20190304, end: 20190401

REACTIONS (2)
  - Pain in extremity [Recovered/Resolved]
  - Genital burning sensation [Recovered/Resolved]

NARRATIVE: CASE EVENT DATE: 20190524
